FAERS Safety Report 8581267 (Version 7)
Quarter: 2012Q4

REPORT INFORMATION
  Report Type: Report from Study
  Country: DE (occurrence: DE)
  Receive Date: 20120525
  Receipt Date: 20121105
  Transmission Date: 20130627
  Serious: Yes (Hospitalization, Disabling)
  Sender: FDA-Public Use
  Company Number: DE-ABBOTT-12P-062-0935772-00

PATIENT
  Age: 48 Year
  Sex: Female
  Weight: 61 kg

DRUGS (11)
  1. HUMIRA [Suspect]
     Indication: CROHN^S DISEASE
     Dosage: Once
     Route: 058
     Dates: start: 20120213, end: 20120213
  2. HUMIRA [Suspect]
     Dosage: Week 2
     Route: 058
     Dates: start: 20120227, end: 20120227
  3. HUMIRA [Suspect]
     Route: 058
     Dates: start: 20120312, end: 20120514
  4. PREDNISONE [Suspect]
     Indication: CROHN^S DISEASE
     Route: 048
     Dates: start: 20111219, end: 20120101
  5. PREDNISONE [Suspect]
     Route: 048
     Dates: start: 20120102, end: 20120108
  6. PREDNISONE [Suspect]
     Route: 048
     Dates: start: 20120109, end: 20120115
  7. PREDNISONE [Suspect]
     Route: 048
     Dates: start: 20120116, end: 20120122
  8. PREDNISONE [Suspect]
     Route: 048
     Dates: start: 20120123, end: 20120129
  9. PREDNISONE [Suspect]
     Route: 048
     Dates: start: 20120130, end: 20120205
  10. PREDNISONE [Suspect]
     Route: 048
     Dates: start: 20120206, end: 20120212
  11. CHOLESTAGEL [Concomitant]
     Indication: DIARRHOEA
     Dates: start: 20120327

REACTIONS (1)
  - Crohn^s disease [Not Recovered/Not Resolved]
